FAERS Safety Report 9642112 (Version 2)
Quarter: 2013Q4

REPORT INFORMATION
  Report Type: Report from Study
  Country: AU (occurrence: AU)
  Receive Date: 20131023
  Receipt Date: 20131028
  Transmission Date: 20140711
  Serious: Yes (Other)
  Sender: FDA-Public Use
  Company Number: AU-ROCHE-1291720

PATIENT
  Age: 68 Year
  Sex: Female

DRUGS (12)
  1. ACTEMRA [Suspect]
     Indication: RHEUMATOID ARTHRITIS
     Route: 042
     Dates: start: 20110207
  2. ASPIRIN [Concomitant]
     Route: 048
  3. COVERSYL PLUS (AUSTRALIA) [Concomitant]
     Indication: BLOOD PRESSURE
     Dosage: 5/1.25 MG
     Route: 048
  4. AMITRIPTYLINE [Concomitant]
     Route: 048
  5. MEGAFOL [Concomitant]
     Route: 048
  6. METHOTREXATE [Concomitant]
     Route: 048
  7. ESOMEPRAZOLE [Concomitant]
     Route: 065
  8. OSTEOVIT (CALCIUM/VIT D) [Concomitant]
     Route: 048
  9. RANITIDINE [Concomitant]
     Route: 065
  10. ATENOLOL [Concomitant]
     Route: 048
  11. PREDNISOLONE [Concomitant]
     Route: 048
  12. ROSUVASTATIN [Concomitant]
     Route: 048

REACTIONS (6)
  - Arthralgia [Not Recovered/Not Resolved]
  - Anaemia [Not Recovered/Not Resolved]
  - Diverticulitis [Not Recovered/Not Resolved]
  - Sinusitis [Recovered/Resolved]
  - Swelling face [Recovered/Resolved]
  - Tooth infection [Recovered/Resolved]
